FAERS Safety Report 4961903-2 (Version None)
Quarter: 2006Q1

REPORT INFORMATION
  Report Type: 
  Country: None (occurrence: None)
  Receive Date: 20060329
  Receipt Date: 20060319
  Transmission Date: 20060701
  Serious: Yes (Hospitalization)
  Sender: FDA-Public Use
  Company Number: 2006RR-01821

PATIENT
  Age: 22 Year
  Sex: Male

DRUGS (3)
  1. ACETAMINOPHEN [Suspect]
     Indication: SUICIDE ATTEMPT
     Dosage: 25 G
  2. IBUPROFEN [Suspect]
     Indication: SUICIDE ATTEMPT
     Dosage: 25 X 400 MG, ORAL
     Route: 048
  3. PHENYTOIN [Concomitant]

REACTIONS (9)
  - DRUG TOXICITY [None]
  - HAEMODIALYSIS [None]
  - HEPATIC ENCEPHALOPATHY [None]
  - HEPATIC FAILURE [None]
  - HEPATIC NECROSIS [None]
  - INTENTIONAL OVERDOSE [None]
  - LIVER TRANSPLANT [None]
  - RENAL FAILURE ACUTE [None]
  - SUICIDE ATTEMPT [None]
